FAERS Safety Report 13795773 (Version 1)
Quarter: 2017Q3

REPORT INFORMATION
  Report Type: Spontaneous
  Country: AT (occurrence: AT)
  Receive Date: 20170726
  Receipt Date: 20170726
  Transmission Date: 20171127
  Serious: Yes (Other)
  Sender: FDA-Public Use
  Company Number: AT-ASTRAZENECA-2017SE75312

PATIENT
  Age: 63 Year
  Sex: Female

DRUGS (1)
  1. FULVESTRANT. [Suspect]
     Active Substance: FULVESTRANT
     Route: 030

REACTIONS (4)
  - Metastases to liver [Unknown]
  - Malignant neoplasm progression [Unknown]
  - Depression [Unknown]
  - Apathy [Unknown]
